FAERS Safety Report 6690169-0 (Version None)
Quarter: 2010Q2

REPORT INFORMATION
  Report Type: 
  Country: None (occurrence: None)
  Receive Date: 20100421
  Receipt Date: 20100413
  Transmission Date: 20101027
  Serious: Yes (Other)
  Sender: FDA-Public Use
  Company Number: US-JNJFOC-20100209705

PATIENT
  Sex: Male
  Weight: 77.11 kg

DRUGS (12)
  1. DURAGESIC-100 [Suspect]
     Indication: NECK PAIN
     Route: 062
  2. DURAGESIC-100 [Suspect]
     Indication: BACK PAIN
     Route: 062
  3. DURAGESIC-100 [Suspect]
     Route: 062
  4. DURAGESIC-100 [Suspect]
     Route: 062
  5. HYZAAR [Concomitant]
     Indication: HYPERTENSION
     Route: 048
  6. TRICOR [Concomitant]
     Indication: BLOOD CHOLESTEROL INCREASED
     Route: 048
  7. SYNTHROID [Concomitant]
     Indication: HYPOTHYROIDISM
     Route: 048
  8. ZETIA [Concomitant]
     Indication: BLOOD TRIGLYCERIDES INCREASED
     Route: 048
  9. SEROQUEL [Concomitant]
     Indication: SLEEP DISORDER
     Route: 048
  10. EFFEXOR [Concomitant]
     Indication: DEPRESSION
     Route: 048
  11. ZANAFLEX [Concomitant]
     Indication: MUSCLE RELAXANT THERAPY
     Route: 048
  12. CELEBREX [Concomitant]
     Indication: ARTHRITIS
     Route: 048

REACTIONS (6)
  - DEPRESSION [None]
  - DRUG ADMINISTERED AT INAPPROPRIATE SITE [None]
  - HOT FLUSH [None]
  - SLEEP DISORDER [None]
  - SOMNOLENCE [None]
  - WRONG TECHNIQUE IN DRUG USAGE PROCESS [None]
